FAERS Safety Report 8376810-5 (Version None)
Quarter: 2012Q2

REPORT INFORMATION
  Report Type: 
  Country: None (occurrence: None)
  Receive Date: 20120522
  Receipt Date: 20120503
  Transmission Date: 20120825
  Serious: Yes (Hospitalization)
  Sender: FDA-Public Use
  Company Number: US-BAYER-2012-014448

PATIENT
  Age: 25 Year
  Sex: Female
  Weight: 70.295 kg

DRUGS (8)
  1. YASMIN [Suspect]
     Indication: CONTRACEPTION
     Dosage: UNK
     Dates: start: 20080828, end: 20100205
  2. IBUPROFEN [Concomitant]
  3. YASMIN [Suspect]
     Indication: ACNE
  4. YAZ [Suspect]
  5. SINGULAIR [Concomitant]
     Dosage: 10 MG, UNK
     Route: 048
  6. MULTI-VITAMIN [Concomitant]
     Dosage: 1 UNK, DAILY
     Dates: start: 20060101
  7. ADVAIR DISKUS 100/50 [Concomitant]
     Dosage: 100MCG-50MCG, BID
     Route: 055
  8. ALBUTEROL [Concomitant]
     Dosage: 0.083 %, QID
     Route: 055

REACTIONS (6)
  - DEEP VEIN THROMBOSIS [None]
  - INJURY [None]
  - PAIN [None]
  - MUSCLE SPASMS [None]
  - PULMONARY EMBOLISM [None]
  - DYSPNOEA EXERTIONAL [None]
